FAERS Safety Report 9671427 (Version 2)
Quarter: 2013Q4

REPORT INFORMATION
  Report Type: Spontaneous
  Country: US (occurrence: US)
  Receive Date: 20131106
  Receipt Date: 20131210
  Transmission Date: 20140711
  Serious: Yes (Hospitalization, Other)
  Sender: FDA-Public Use
  Company Number: US-BAYER-2013-131935

PATIENT
  Age: 60 Year
  Sex: Female
  Weight: 110 kg

DRUGS (8)
  1. BETASERON [Suspect]
     Indication: RELAPSING-REMITTING MULTIPLE SCLEROSIS
     Dosage: 0.25 MG, QOD
     Route: 058
  2. GABAPENTIN [Concomitant]
     Dosage: 100 MG, UNK
  3. CYCLOBENZAPRINE [Concomitant]
     Dosage: 5 MG, UNK
  4. ALENDRONATE SODIUM [Concomitant]
     Dosage: 5 MG, UNK
  5. NIFEDIPINE [Concomitant]
     Dosage: 20 MG, UNK
  6. OXYBUTYNIN [Concomitant]
     Dosage: 5 MG, UNK
  7. IBUPROFEN [Concomitant]
     Dosage: 200 MG, UNK
  8. ELIDEL [Concomitant]

REACTIONS (4)
  - Urinary tract infection [Recovered/Resolved]
  - Pollakiuria [Recovered/Resolved]
  - Pneumonia aspiration [Recovered/Resolved]
  - Abnormal loss of weight [None]
